FAERS Safety Report 4707839-3 (Version None)
Quarter: 2005Q3

REPORT INFORMATION
  Report Type: 
  Country: None (occurrence: None)
  Receive Date: 20050705
  Receipt Date: 20050705
  Transmission Date: 20060218
  Serious: Yes (Life-Threatening)
  Sender: FDA-Public Use
  Company Number: None

PATIENT
  Age: 47 Year
  Sex: Female
  Weight: 96.6162 kg

DRUGS (2)
  1. PAXIL CR [Suspect]
     Indication: ANXIETY
     Dosage: DAILY    8 MONTHS   ORAL
     Route: 048
     Dates: start: 20031001, end: 20050214
  2. PAXIL CR [Suspect]
     Indication: PANIC ATTACK
     Dosage: DAILY    8 MONTHS   ORAL
     Route: 048
     Dates: start: 20031001, end: 20050214

REACTIONS (4)
  - DEPRESSION [None]
  - FEELING ABNORMAL [None]
  - PHARMACEUTICAL PRODUCT COMPLAINT [None]
  - SUICIDE ATTEMPT [None]
